FAERS Safety Report 7545740-0 (Version None)
Quarter: 2011Q2

REPORT INFORMATION
  Report Type: 
  Country: None (occurrence: None)
  Receive Date: 20110614
  Receipt Date: 20110603
  Transmission Date: 20111010
  Serious: Yes (Other)
  Sender: FDA-Public Use
  Company Number: ES-JNJFOC-20110511856

PATIENT
  Age: 98 Year
  Sex: Female

DRUGS (2)
  1. TRAZODONE HCL [Suspect]
     Indication: PRODUCT USED FOR UNKNOWN INDICATION
     Route: 065
     Dates: end: 20110216
  2. RISPERIDONE FLAS [Suspect]
     Indication: PRODUCT USED FOR UNKNOWN INDICATION
     Route: 048
     Dates: start: 20100216

REACTIONS (2)
  - DRUG ADMINISTRATION ERROR [None]
  - DELUSION [None]
